FAERS Safety Report 8004452-X (Version None)
Quarter: 2011Q4

REPORT INFORMATION
  Report Type: 
  Country: None (occurrence: None)
  Receive Date: 20111221
  Receipt Date: 20111221
  Transmission Date: 20120403
  Serious: Yes (Other)
  Sender: FDA-Public Use
  Company Number: None

PATIENT
  Age: 83 Year
  Sex: Female
  Weight: 61.2356 kg

DRUGS (1)
  1. PREDNISONE [Suspect]
     Indication: SINUSITIS
     Dosage: 12 DAY PAK 6 FIRST DAY
     Dates: start: 20111028, end: 20111029

REACTIONS (11)
  - DRUG HYPERSENSITIVITY [None]
  - ABASIA [None]
  - NERVOUSNESS [None]
  - INSOMNIA [None]
  - DIZZINESS [None]
  - VOMITING [None]
  - MALAISE [None]
  - ABDOMINAL PAIN UPPER [None]
  - HEADACHE [None]
  - IMPAIRED DRIVING ABILITY [None]
  - DIARRHOEA [None]
